FAERS Safety Report 20799755 (Version 2)
Quarter: 2022Q2

REPORT INFORMATION
  Report Type: Spontaneous
  Country: US (occurrence: None)
  Receive Date: 20220509
  Receipt Date: 20220519
  Transmission Date: 20220721
  Serious: No
  Sender: FDA-Public Use
  Company Number: 2022A172108

PATIENT
  Age: 35692 Day
  Sex: Male

DRUGS (1)
  1. PULMICORT FLEXHALER [Suspect]
     Active Substance: BUDESONIDE
     Dosage: 60 INHALATIONS OF PULMICORT FLEXHALER 1 PUFF TWICE DAILY FOR YEARS
     Route: 055

REACTIONS (5)
  - Dementia [Unknown]
  - Intentional product misuse [Unknown]
  - Wrong technique in device usage process [Unknown]
  - Product use issue [Unknown]
  - Device malfunction [Unknown]

NARRATIVE: CASE EVENT DATE: 20220215
